FAERS Safety Report 9187062 (Version 2)
Quarter: 2013Q2

REPORT INFORMATION
  Report Type: Spontaneous
  Country: CA (occurrence: CA)
  Receive Date: 20130325
  Receipt Date: 20130416
  Transmission Date: 20140414
  Serious: Yes (Hospitalization)
  Sender: FDA-Public Use
  Company Number: CA-AMGEN-CANSP2013017630

PATIENT
  Age: 65 Year
  Sex: Female
  Weight: 66.67 kg

DRUGS (6)
  1. PROLIA [Suspect]
     Indication: OSTEOPOROSIS POSTMENOPAUSAL
     Dosage: 60 MG, Q6MO
     Route: 058
     Dates: start: 20110404
  2. MICRONOR [Concomitant]
     Dosage: 0.35
     Route: 048
  3. CARBOCAL [Concomitant]
     Dosage: 500 MG, BID
     Route: 048
  4. ESTROGEL [Concomitant]
  5. NAPROXEN [Concomitant]
     Dosage: 500 MG, BID
     Route: 048
  6. ATIVAN [Concomitant]
     Dosage: 1 MG, UNK
     Route: 048

REACTIONS (2)
  - Hip fracture [Recovering/Resolving]
  - Fall [Unknown]
